FAERS Safety Report 5887729-3 (Version None)
Quarter: 2008Q3

REPORT INFORMATION
  Report Type: 
  Country: None (occurrence: None)
  Receive Date: 20080916
  Receipt Date: 20080904
  Transmission Date: 20090109
  Serious: Yes (Other)
  Sender: FDA-Public Use
  Company Number: TRP_05882_2008

PATIENT
  Sex: Male
  Weight: 77.1115 kg

DRUGS (6)
  1. INFERGEN [Suspect]
     Indication: HEPATITIS C
     Dosage: 15 ?G QD SUBCUTANEOUS, 15 ?G 3X/WEEK SUBCUTANEOUS
     Route: 058
     Dates: start: 20080812
  2. INFERGEN [Suspect]
     Indication: HEPATITIS C
     Dosage: 15 ?G QD SUBCUTANEOUS, 15 ?G 3X/WEEK SUBCUTANEOUS
     Route: 058
     Dates: start: 20080828
  3. RIBAVIRIN [Suspect]
     Indication: HEPATITIS C
     Dosage: 400 MG BID ORAL
     Route: 048
     Dates: start: 20080812
  4. AMBIEN [Concomitant]
  5. MESALAMINE [Concomitant]
  6. ARANESP [Concomitant]

REACTIONS (11)
  - ANAEMIA [None]
  - ASTHENIA [None]
  - CONDITION AGGRAVATED [None]
  - COUGH [None]
  - DECREASED APPETITE [None]
  - DIZZINESS [None]
  - DYSPNOEA [None]
  - FATIGUE [None]
  - MEMORY IMPAIRMENT [None]
  - PALLOR [None]
  - WEIGHT DECREASED [None]
